FAERS Safety Report 12634107 (Version 1)
Quarter: 2016Q3

REPORT INFORMATION
  Report Type: Spontaneous
  Country: US (occurrence: None)
  Receive Date: 20160808
  Receipt Date: 20160808
  Transmission Date: 20161109
  Serious: Yes (Death)
  Sender: FDA-Public Use
  Company Number: None

PATIENT
  Age: 92 Year
  Sex: Male

DRUGS (22)
  1. ATORVASTATIN [Concomitant]
     Active Substance: ATORVASTATIN
  2. LEVOTHYROXIN [Concomitant]
     Active Substance: LEVOTHYROXINE
  3. SEA SOFT SPR [Concomitant]
  4. TAMSULOSIN [Concomitant]
     Active Substance: TAMSULOSIN
  5. AMLODIPINE [Concomitant]
     Active Substance: AMLODIPINE BESYLATE
  6. FLUTICASONE [Concomitant]
     Active Substance: FLUTICASONE\FLUTICASONE PROPIONATE
  7. HYD POL/CPM SUS [Concomitant]
  8. DIGOX [Concomitant]
     Active Substance: DIGOXIN
  9. OMEPRAZOLE. [Concomitant]
     Active Substance: OMEPRAZOLE
  10. ALBUTEROL. [Concomitant]
     Active Substance: ALBUTEROL
  11. FUROSEMIDE. [Concomitant]
     Active Substance: FUROSEMIDE
  12. STOOL SOFTNER [Concomitant]
     Active Substance: DOCUSATE SODIUM
  13. VESICARE [Concomitant]
     Active Substance: SOLIFENACIN SUCCINATE
  14. ESBRIET [Suspect]
     Active Substance: PIRFENIDONE
     Indication: PULMONARY ARTERIAL HYPERTENSION
     Route: 048
     Dates: start: 201509, end: 201607
  15. BENICAR [Concomitant]
     Active Substance: OLMESARTAN MEDOXOMIL
  16. CLONAZEPAM. [Concomitant]
     Active Substance: CLONAZEPAM
  17. LOSARTAN. [Concomitant]
     Active Substance: LOSARTAN
  18. METFORMIN [Concomitant]
     Active Substance: METFORMIN HYDROCHLORIDE
  19. METOPROLOL. [Concomitant]
     Active Substance: METOPROLOL
  20. NAMENDA [Concomitant]
     Active Substance: MEMANTINE HYDROCHLORIDE
  21. RIVASTIGMINE DIS [Concomitant]
  22. PREDNISONE. [Concomitant]
     Active Substance: PREDNISONE

REACTIONS (1)
  - Death [None]

NARRATIVE: CASE EVENT DATE: 201607
